FAERS Safety Report 25778320 (Version 1)
Quarter: 2025Q3

REPORT INFORMATION
  Report Type: Spontaneous
  Country: US (occurrence: US)
  Receive Date: 20250909
  Receipt Date: 20250909
  Transmission Date: 20251020
  Serious: No
  Sender: NOVEN
  Company Number: US-NOVEN PHARMACEUTICALS, INC.-2024-NOV-US001584

PATIENT
  Age: 56 Year
  Sex: Female
  Weight: 67.574 kg

DRUGS (2)
  1. COMBIPATCH [Suspect]
     Active Substance: ESTRADIOL\NORETHINDRONE ACETATE
     Indication: Amenorrhoea
     Route: 062
  2. COMBIPATCH [Suspect]
     Active Substance: ESTRADIOL\NORETHINDRONE ACETATE
     Indication: Off label use

REACTIONS (7)
  - Abdominal pain [Recovered/Resolved]
  - Breast pain [Recovered/Resolved]
  - Nausea [Recovered/Resolved]
  - Intermenstrual bleeding [Unknown]
  - Therapeutic response unexpected [Not Recovered/Not Resolved]
  - Wrong technique in product usage process [Not Recovered/Not Resolved]
  - Off label use [Not Recovered/Not Resolved]
